FAERS Safety Report 13286388 (Version 1)
Quarter: 2017Q1

REPORT INFORMATION
  Report Type: Spontaneous
  Country: DE (occurrence: DE)
  Receive Date: 20170301
  Receipt Date: 20170301
  Transmission Date: 20170428
  Serious: Yes (Hospitalization)
  Sender: FDA-Public Use
  Company Number: GXKR2017DE001317

PATIENT

DRUGS (1)
  1. AMOXIHEXAL [Suspect]
     Active Substance: AMOXICILLIN
     Indication: SWELLING FACE
     Dosage: 500 MG, UNK
     Route: 065
     Dates: start: 20170102

REACTIONS (3)
  - Gait disturbance [Recovered/Resolved]
  - Visual impairment [Recovered/Resolved]
  - Dizziness [Recovered/Resolved]

NARRATIVE: CASE EVENT DATE: 20170105
